FAERS Safety Report 11098183 (Version 1)
Quarter: 2015Q2

REPORT INFORMATION
  Report Type: Spontaneous
  Country: ES (occurrence: ES)
  Receive Date: 20150507
  Receipt Date: 20150507
  Transmission Date: 20150821
  Serious: Yes (Life-Threatening)
  Sender: FDA-Public Use
  Company Number: ES-JNJFOC-20150424520

PATIENT
  Age: 10 Year
  Sex: Male
  Weight: 47 kg

DRUGS (1)
  1. LOMPER [Suspect]
     Active Substance: MEBENDAZOLE
     Indication: PARASITIC GASTROENTERITIS
     Route: 048
     Dates: start: 20150423, end: 20150423

REACTIONS (2)
  - Urticaria [Recovered/Resolved]
  - Asthma [Recovered/Resolved]

NARRATIVE: CASE EVENT DATE: 20150423
